FAERS Safety Report 8043777-9 (Version None)
Quarter: 2012Q1

REPORT INFORMATION
  Report Type: 
  Country: None (occurrence: None)
  Receive Date: 20120113
  Receipt Date: 20120106
  Transmission Date: 20120608
  Serious: No
  Sender: FDA-Public Use
  Company Number: US-BIOGENIDEC-2011BI045750

PATIENT
  Sex: Female

DRUGS (4)
  1. TYSABRI [Suspect]
     Indication: MULTIPLE SCLEROSIS
     Route: 042
     Dates: end: 20110801
  2. TYSABRI [Suspect]
     Route: 042
     Dates: start: 20090316, end: 20100219
  3. REBIF [Concomitant]
     Indication: MULTIPLE SCLEROSIS
  4. TYSABRI [Suspect]
     Route: 042

REACTIONS (2)
  - MULTIPLE SCLEROSIS [None]
  - GENERAL PHYSICAL HEALTH DETERIORATION [None]
